FAERS Safety Report 5067544-3 (Version None)
Quarter: 2006Q3

REPORT INFORMATION
  Report Type: 
  Country: None (occurrence: None)
  Receive Date: 20060727
  Receipt Date: 20060720
  Transmission Date: 20061208
  Serious: Yes (Other)
  Sender: FDA-Public Use
  Company Number: 2006089018

PATIENT
  Age: 40 Year
  Sex: Female
  Weight: 58.9676 kg

DRUGS (1)
  1. BENADRYL [Suspect]
     Indication: INSOMNIA
     Dosage: 1 CAPLET 3 TIMES DAILY,ORAL
     Route: 048
     Dates: start: 20060601

REACTIONS (1)
  - DRUG DEPENDENCE [None]
